FAERS Safety Report 20331958 (Version 3)
Quarter: 2022Q3

REPORT INFORMATION
  Report Type: Spontaneous
  Country: CA (occurrence: CA)
  Receive Date: 20220113
  Receipt Date: 20220704
  Transmission Date: 20221027
  Serious: Yes (Other)
  Sender: FDA-Public Use
  Company Number: CA-PFIZER INC-202101040959

PATIENT
  Age: 36 Year
  Sex: Male

DRUGS (5)
  1. XELJANZ [Suspect]
     Active Substance: TOFACITINIB CITRATE
     Indication: Colitis ulcerative
     Dosage: 10 MG, 2X/DAY FOR 8 WEEKS FOLLOWED BY 5 MG, 2X/DAY MAINTENANCE
     Route: 048
     Dates: start: 20210805, end: 202201
  2. XELJANZ [Suspect]
     Active Substance: TOFACITINIB CITRATE
     Dosage: 10 MG, 2X/DAY FOR 8 WEEKS FOLLOWED BY 5 MG, 2X/DAY MAINTENANCE. DISCONTINUED
     Route: 048
     Dates: start: 20210805, end: 202202
  3. LOSEC [Concomitant]
     Active Substance: OMEPRAZOLE
     Dosage: 1 DF
  4. MESALAMINE [Concomitant]
     Active Substance: MESALAMINE
     Dosage: 1 DF
  5. PREDNISONE [Concomitant]
     Active Substance: PREDNISONE
     Dosage: UNK

REACTIONS (3)
  - Colitis ulcerative [Unknown]
  - Intestinal resection [Unknown]
  - Nausea [Unknown]

NARRATIVE: CASE EVENT DATE: 20210805
